FAERS Safety Report 5537749-3 (Version None)
Quarter: 2007Q4

REPORT INFORMATION
  Report Type: 
  Country: None (occurrence: None)
  Receive Date: 20071207
  Receipt Date: 20040329
  Transmission Date: 20080405
  Serious: Yes (Other)
  Sender: FDA-Public Use
  Company Number: US-PFIZER INC-2004207232US

PATIENT
  Sex: Female

DRUGS (1)
  1. CELEBREX [Suspect]
     Indication: EXOSTOSIS
     Dates: start: 20040326, end: 20040327

REACTIONS (4)
  - ASTHMA [None]
  - DIZZINESS [None]
  - VERTIGO [None]
  - VISION BLURRED [None]
